FAERS Safety Report 16999969 (Version 1)
Quarter: 2019Q4

REPORT INFORMATION
  Report Type: Spontaneous
  Country: US (occurrence: US)
  Receive Date: 20191106
  Receipt Date: 20191106
  Transmission Date: 20200122
  Serious: Yes (Other)
  Sender: FDA-Public Use
  Company Number: US-PFIZER INC-2019475879

PATIENT
  Age: 52 Year
  Sex: Female
  Weight: 56.7 kg

DRUGS (3)
  1. ZIAC [CEFIXIME] [Concomitant]
     Indication: HYPERTENSION
     Dosage: 5 MG, 2X/DAY
     Dates: start: 201902, end: 201902
  2. CARVEDILOL. [Concomitant]
     Active Substance: CARVEDILOL
     Indication: HYPERTENSION
     Dosage: 3.125 MG, 2X/DAY
     Dates: start: 201902
  3. LIPITOR [Suspect]
     Active Substance: ATORVASTATIN CALCIUM
     Indication: BLOOD CHOLESTEROL INCREASED
     Dosage: UNK
     Dates: start: 2012, end: 2014

REACTIONS (2)
  - Autoimmune disorder [Not Recovered/Not Resolved]
  - Muscle disorder [Not Recovered/Not Resolved]

NARRATIVE: CASE EVENT DATE: 2012
